FAERS Safety Report 7753383-9 (Version None)
Quarter: 2011Q3

REPORT INFORMATION
  Report Type: 
  Country: None (occurrence: None)
  Receive Date: 20110915
  Receipt Date: 20110909
  Transmission Date: 20111222
  Serious: Yes (Hospitalization, Disabling)
  Sender: FDA-Public Use
  Company Number: PHHY2009DE54892

PATIENT
  Sex: Female

DRUGS (4)
  1. CYCLOPHOSPHAMIDE [Suspect]
     Dosage: UNK
     Dates: end: 20091001
  2. DOCETAXEL [Suspect]
     Indication: BREAST CANCER
     Dosage: UNK
     Dates: end: 20091001
  3. FEMARA [Suspect]
     Indication: BREAST CANCER
     Dosage: 2.5 MG, DAILY
     Route: 048
     Dates: start: 20091103, end: 20091209
  4. EPIRUBICIN [Suspect]
     Dosage: UNK
     Dates: end: 20091001

REACTIONS (4)
  - BLINDNESS [None]
  - PAPILLOEDEMA [None]
  - VISUAL ACUITY REDUCED [None]
  - OPTIC ISCHAEMIC NEUROPATHY [None]
